FAERS Safety Report 7457488-1 (Version None)
Quarter: 2011Q1

REPORT INFORMATION
  Report Type: 
  Country: None (occurrence: None)
  Receive Date: 20110302
  Receipt Date: 20101216
  Transmission Date: 20110831
  Serious: Yes (Hospitalization, Other)
  Sender: FDA-Public Use
  Company Number: 163-21880-10011765

PATIENT
  Age: 65 Year
  Sex: Male

DRUGS (2)
  1. REVLIMID [Suspect]
     Indication: MULTIPLE MYELOMA
     Dosage: 25 MG, QD X 21 DAYS THEN OFF 7  DAYS, PO
     Route: 048
     Dates: start: 20091101
  2. REVLIMID [Suspect]

REACTIONS (10)
  - URTICARIA [None]
  - BACK PAIN [None]
  - DEEP VEIN THROMBOSIS [None]
  - PAIN IN EXTREMITY [None]
  - CHEST PAIN [None]
  - PULMONARY EMBOLISM [None]
  - ATRIAL FIBRILLATION [None]
  - OROPHARYNGEAL PAIN [None]
  - INSOMNIA [None]
  - MUSCLE SPASMS [None]
